FAERS Safety Report 20071212 (Version 2)
Quarter: 2021Q4

REPORT INFORMATION
  Report Type: Spontaneous
  Country: PK (occurrence: PK)
  Receive Date: 20211115
  Receipt Date: 20211128
  Transmission Date: 20220303
  Serious: Yes (Other)
  Sender: FDA-Public Use
  Company Number: PK-PFIZER INC-2021337168

PATIENT
  Age: 26 Year
  Sex: Male

DRUGS (8)
  1. ENBREL [Suspect]
     Active Substance: ETANERCEPT
     Indication: Ankylosing spondylitis
     Dosage: 50 MG, WEEKLY
     Route: 058
     Dates: start: 2008
  2. ENBREL [Suspect]
     Active Substance: ETANERCEPT
     Dosage: 50 MG, WEEKLY
     Route: 058
     Dates: start: 20210326
  3. INDROP D [Concomitant]
     Dosage: 1 DF, MONTHLY (TAKE 1 CAPSULE ONCE A MONTH AFTER MEAL, CONTINUE)
  4. INDROP D [Concomitant]
     Dosage: UNK
     Dates: start: 20211102
  5. OSSOBON D [Concomitant]
     Dosage: UNK
  6. OSSOBON D [Concomitant]
     Dosage: UNK
     Dates: start: 20211102
  7. RISEK [OMEPRAZOLE] [Concomitant]
     Dosage: 20 MG
  8. RISEK [OMEPRAZOLE] [Concomitant]
     Dosage: UNK

REACTIONS (8)
  - Spinal disorder [Unknown]
  - Haematochezia [Recovered/Resolved]
  - Back pain [Unknown]
  - Lethargy [Unknown]
  - Palpitations [Unknown]
  - Musculoskeletal stiffness [Unknown]
  - Fatigue [Unknown]
  - Anxiety [Unknown]
